FAERS Safety Report 7150560-5 (Version None)
Quarter: 2010Q4

REPORT INFORMATION
  Report Type: 
  Country: None (occurrence: None)
  Receive Date: 20101210
  Receipt Date: 20101207
  Transmission Date: 20110411
  Serious: Yes (Death, Other)
  Sender: FDA-Public Use
  Company Number: KW-ROXANE LABORATORIES, INC.-2010-RO-01590RO

PATIENT
  Age: 8 Year
  Sex: Male

DRUGS (3)
  1. METHOTREXATE [Suspect]
     Indication: BONE SARCOMA
  2. CISPLATIN [Suspect]
     Indication: BONE SARCOMA
  3. DOXORUBICIN [Suspect]
     Indication: BONE SARCOMA

REACTIONS (2)
  - ACUTE MYELOID LEUKAEMIA [None]
  - PULMONARY HAEMORRHAGE [None]
